FAERS Safety Report 18205047 (Version 2)
Quarter: 2020Q3

REPORT INFORMATION
  Report Type: Report from Study
  Country: DE (occurrence: DE)
  Receive Date: 20200828
  Receipt Date: 20200902
  Transmission Date: 20201103
  Serious: Yes (Hospitalization)
  Sender: FDA-Public Use
  Company Number: DE-ROCHE-2664944

PATIENT
  Age: 73 Year
  Sex: Female
  Weight: 53.5 kg

DRUGS (5)
  1. OXALIPLATIN. [Suspect]
     Active Substance: OXALIPLATIN
     Indication: GASTRIC CANCER
     Dosage: OVER 2 HOURS?LAST DOSE (136 MG) GIVEN: 20/AUG/2020
     Route: 042
  2. DOCETAXEL. [Suspect]
     Active Substance: DOCETAXEL
     Indication: GASTRIC CANCER
     Dosage: LAST DOSE (80 MG) GIVEN: 20/AUG/2020?OVER 1 HOUR
     Route: 042
  3. FLUOROURACIL. [Suspect]
     Active Substance: FLUOROURACIL
     Indication: GASTRIC CANCER
     Dosage: OVER 24 HOURS?LAST DOSE (4160 MG) GIVEN: 20/AUG/2020
     Route: 042
  4. ATEZOLIZUMAB. [Suspect]
     Active Substance: ATEZOLIZUMAB
     Indication: GASTRIC CANCER
     Dosage: LAST DOSE OF ATEZOLIZUMAB: 20/AUG/2020?OVER 1 HOUR (4 CYCLES PERIOPERATIVE WITH FLOT)
     Route: 042
  5. LEUCOVORIN. [Suspect]
     Active Substance: LEUCOVORIN
     Indication: GASTRIC CANCER
     Dosage: OVER 1 HOUR?LAST DOSE (320 MG) GIVEN: 20/AUG/2020
     Route: 042

REACTIONS (1)
  - Joint swelling [Recovered/Resolved]

NARRATIVE: CASE EVENT DATE: 20200821
